FAERS Safety Report 6793817-X (Version None)
Quarter: 2010Q2

REPORT INFORMATION
  Report Type: 
  Country: None (occurrence: None)
  Receive Date: 20100624
  Receipt Date: 20090623
  Transmission Date: 20101027
  Serious: Yes (Other)
  Sender: FDA-Public Use
  Company Number: US-PFIZER INC-2008098415

PATIENT
  Sex: Female
  Weight: 94.331 kg

DRUGS (2)
  1. SUTENT [Suspect]
     Indication: RENAL CELL CARCINOMA
     Dosage: 25 MG, DAILY, TDD 25 MG
     Route: 048
     Dates: start: 20060920, end: 20080206
  2. SORAFENIB [Suspect]
     Dosage: 200 MG, 2X/DAY
     Dates: start: 20080430, end: 20080806

REACTIONS (2)
  - BLOOD CREATININE INCREASED [None]
  - NASAL SEPTUM PERFORATION [None]
